FAERS Safety Report 7644100-1 (Version None)
Quarter: 2011Q3

REPORT INFORMATION
  Report Type: 
  Country: None (occurrence: None)
  Receive Date: 20110729
  Receipt Date: 20110720
  Transmission Date: 20111222
  Serious: Yes (Other)
  Sender: FDA-Public Use
  Company Number: FR-JNJFOC-20110600090

PATIENT
  Sex: Female
  Weight: 52 kg

DRUGS (7)
  1. TOPIRAMATE [Suspect]
     Route: 048
     Dates: start: 20101028
  2. TOPIRAMATE [Suspect]
     Route: 048
  3. OXAZEPAM [Concomitant]
     Indication: DEPRESSION
     Route: 048
  4. NOCTAMIDE [Concomitant]
     Indication: DEPRESSION
     Route: 048
  5. PROPRANOLOL [Concomitant]
     Indication: TREMOR
     Route: 048
  6. TOPIRAMATE [Suspect]
     Indication: EPILEPSY
     Route: 048
     Dates: start: 20110401, end: 20110501
  7. VENLAFAXINE [Concomitant]
     Indication: DEPRESSION
     Route: 048
     Dates: start: 20050101

REACTIONS (1)
  - DEAFNESS BILATERAL [None]
